FAERS Safety Report 25901453 (Version 1)
Quarter: 2025Q4

REPORT INFORMATION
  Report Type: Spontaneous
  Country: US (occurrence: None)
  Receive Date: 20251008
  Receipt Date: 20251008
  Transmission Date: 20260119
  Serious: Yes (Hospitalization)
  Sender: FDA-CTU
  Company Number: None

PATIENT
  Sex: Female

DRUGS (2)
  1. TADALAFIL [Suspect]
     Active Substance: TADALAFIL
     Indication: Pulmonary arterial hypertension
     Dosage: FREQUENCY : DAILY;?
     Route: 048
     Dates: start: 20250116
  2. TYVASO DPI [Suspect]
     Active Substance: TREPROSTINIL

REACTIONS (12)
  - Cerebrovascular accident [None]
  - Caesarean section [None]
  - Pregnancy [None]
  - Maternal exposure during pregnancy [None]
  - Therapy interrupted [None]
  - Cough [None]
  - Dyspnoea [None]
  - Pulmonary congestion [None]
  - Chest pain [None]
  - Joint swelling [None]
  - Peripheral swelling [None]
  - Peripheral swelling [None]
